FAERS Safety Report 10515118 (Version 2)
Quarter: 2014Q4

REPORT INFORMATION
  Report Type: Spontaneous
  Country: ES (occurrence: ES)
  Receive Date: 20141014
  Receipt Date: 20141022
  Transmission Date: 20150528
  Serious: Yes (Other)
  Sender: FDA-Public Use
  Company Number: ES-ROCHE-1472742

PATIENT
  Age: 69 Year
  Sex: Female

DRUGS (4)
  1. CONDROSAN [Concomitant]
  2. BONVIVA [Suspect]
     Active Substance: IBANDRONATE SODIUM
     Indication: PRODUCT USED FOR UNKNOWN INDICATION
     Route: 065
  3. LANZOL [Concomitant]
     Indication: PROPHYLAXIS
     Route: 065
  4. NATECAL (SPAIN) [Concomitant]
     Route: 065
     Dates: end: 20141001

REACTIONS (2)
  - Arthralgia [Not Recovered/Not Resolved]
  - Musculoskeletal stiffness [Not Recovered/Not Resolved]

NARRATIVE: CASE EVENT DATE: 201405
